FAERS Safety Report 8470654-1 (Version None)
Quarter: 2012Q2

REPORT INFORMATION
  Report Type: 
  Country: None (occurrence: None)
  Receive Date: 20120627
  Receipt Date: 20120626
  Transmission Date: 20120825
  Serious: Yes (Hospitalization, Other)
  Sender: FDA-Public Use
  Company Number: PHHY2010NL43927

PATIENT
  Sex: Female

DRUGS (15)
  1. ACETAMINOPHEN [Concomitant]
     Dosage: 500 MG, PRN
  2. DEXAMETHASONE [Concomitant]
     Dosage: 3 DF, QD
  3. FLUCLOXACILLINE [Concomitant]
     Dosage: 500 MG, 4DD
     Dates: start: 20100701
  4. ZOMETA [Suspect]
     Dosage: 4 MG/5 ML
     Route: 042
     Dates: start: 20100415
  5. ZOMETA [Suspect]
     Dosage: 4 MG/5 ML
     Route: 042
     Dates: start: 20100507
  6. ZOMETA [Suspect]
     Dosage: 4 MG/5 ML
     Route: 042
     Dates: start: 20100604
  7. NAPROXEN [Concomitant]
     Dosage: 500 MG, PRN
  8. LACTULOSE [Concomitant]
     Dosage: 15 ML, 2DD
  9. ZOMETA [Suspect]
     Dosage: 4 MG/5 ML
     Route: 042
     Dates: start: 20100312
  10. ZOMETA [Suspect]
     Dosage: 4 MG/5 ML
     Route: 042
     Dates: start: 20100702
  11. ZOMETA [Suspect]
     Dosage: 4 MG/5 ML
     Route: 042
     Dates: start: 20120507
  12. ZOMETA [Suspect]
     Dosage: 4 MG/5 ML
     Route: 042
     Dates: start: 20120604
  13. XELODA [Concomitant]
     Dosage: 9 DF, 14 DAYS 2DD
  14. ZOMETA [Suspect]
     Dosage: 4 MG/5 ML
     Route: 042
     Dates: start: 20100212
  15. BUMETANIDE [Concomitant]

REACTIONS (4)
  - NAIL BED INFLAMMATION [None]
  - INFLUENZA LIKE ILLNESS [None]
  - INFUSION SITE HAEMORRHAGE [None]
  - HAEMOGLOBIN DECREASED [None]
